FAERS Safety Report 16475592 (Version 2)
Quarter: 2020Q1

REPORT INFORMATION
  Report Type: Spontaneous
  Country: CA (occurrence: CA)
  Receive Date: 20190625
  Receipt Date: 20200108
  Transmission Date: 20200409
  Serious: Yes (Death, Other)
  Sender: FDA-Public Use
  Company Number: CA-TEVA-2019-CA-1067085

PATIENT
  Age: 18 Year
  Sex: Female

DRUGS (8)
  1. ASPIRIN. [Suspect]
     Active Substance: ASPIRIN
     Indication: COMPLETED SUICIDE
  2. QUETIAPINE. [Suspect]
     Active Substance: QUETIAPINE
     Dosage: 500 MILLIGRAM DAILY;
     Route: 048
  3. ACETAMINOPHEN/CAFFEINE [Suspect]
     Active Substance: ACETAMINOPHEN\CAFFEINE
     Indication: COMPLETED SUICIDE
     Route: 048
  4. ATOMEXITINE [Concomitant]
  5. QUETIAPINE. [Suspect]
     Active Substance: QUETIAPINE
     Indication: COMPLETED SUICIDE
     Dosage: 25 MILLIGRAM DAILY;
     Route: 048
  6. CITALOPRAM [Concomitant]
     Active Substance: CITALOPRAM HYDROBROMIDE
  7. ISONIAZID. [Concomitant]
     Active Substance: ISONIAZID
  8. ALCOHOL. [Suspect]
     Active Substance: ALCOHOL
     Indication: COMPLETED SUICIDE
     Route: 048

REACTIONS (21)
  - Cardiac failure [Fatal]
  - Multiple organ dysfunction syndrome [Fatal]
  - Overdose [Fatal]
  - Oxygen saturation decreased [Fatal]
  - Pericardial effusion [Fatal]
  - Cardiac arrest [Fatal]
  - Hepatitis [Fatal]
  - Encephalopathy [Fatal]
  - Seizure [Fatal]
  - Agitation [Fatal]
  - Face oedema [Fatal]
  - Myalgia [Fatal]
  - Nausea [Fatal]
  - Toxicity to various agents [Fatal]
  - Treatment noncompliance [Fatal]
  - Completed suicide [Fatal]
  - Hepatic congestion [Fatal]
  - Hepatic failure [Fatal]
  - Liver injury [Fatal]
  - Myocarditis [Fatal]
  - Oedema peripheral [Fatal]
